FAERS Safety Report 4648814-7 (Version None)
Quarter: 2005Q2

REPORT INFORMATION
  Report Type: 
  Country: None (occurrence: None)
  Receive Date: 20050427
  Receipt Date: 20050415
  Transmission Date: 20051028
  Serious: No
  Sender: FDA-Public Use
  Company Number: 2005CG00756

PATIENT
  Age: 30 Year
  Sex: Female

DRUGS (3)
  1. ZOMIG-ZMT [Suspect]
     Indication: MIGRAINE
  2. VENTOLIN [Suspect]
  3. DOLIPRANE [Suspect]

REACTIONS (4)
  - BLOOD CREATINE PHOSPHOKINASE INCREASED [None]
  - BLOOD LACTATE DEHYDROGENASE INCREASED [None]
  - MYALGIA [None]
  - MYOGLOBIN BLOOD INCREASED [None]
